FAERS Safety Report 8208301-6 (Version None)
Quarter: 2012Q1

REPORT INFORMATION
  Report Type: 
  Country: None (occurrence: None)
  Receive Date: 20120314
  Receipt Date: 20120312
  Transmission Date: 20120608
  Serious: Yes (Death, Hospitalization)
  Sender: FDA-Public Use
  Company Number: PHHY2012DO021971

PATIENT
  Age: 66 Year
  Sex: Male

DRUGS (2)
  1. DIOVAN [Suspect]
     Dosage: 80 MG, PER DAY
     Route: 048
  2. CLOPIDOGREL [Concomitant]

REACTIONS (2)
  - DEATH [None]
  - INGUINAL HERNIA STRANGULATED [None]
